FAERS Safety Report 5398714-2 (Version None)
Quarter: 2007Q3

REPORT INFORMATION
  Report Type: 
  Country: None (occurrence: None)
  Receive Date: 20070726
  Receipt Date: 20070108
  Transmission Date: 20080115
  Serious: No
  Sender: FDA-Public Use
  Company Number: US-AMGEN-KDL206540

PATIENT
  Sex: Female

DRUGS (9)
  1. PROCRIT [Suspect]
     Indication: PRE-EXISTING DISEASE
     Dates: start: 20061009
  2. WELLBUTRIN [Concomitant]
  3. LASIX [Concomitant]
  4. NEOMYCIN SULFATE [Concomitant]
  5. SPIRONOLACTONE [Concomitant]
  6. PEGASYS [Concomitant]
     Route: 058
  7. RIBAVIRIN [Concomitant]
  8. NEUPOGEN [Concomitant]
  9. LEVOXYL [Concomitant]

REACTIONS (1)
  - BONE PAIN [None]
